FAERS Safety Report 14088585 (Version 1)
Quarter: 2017Q4

REPORT INFORMATION
  Report Type: Spontaneous
  Country: US (occurrence: US)
  Receive Date: 20171013
  Receipt Date: 20171013
  Transmission Date: 20180321
  Serious: Yes (Other)
  Sender: FDA-Public Use
  Company Number: US-AMGEN-USASP2017152534

PATIENT
  Age: 59 Year
  Sex: Female

DRUGS (5)
  1. VITAMIN E [Suspect]
     Active Substance: .ALPHA.-TOCOPHEROL
     Indication: PRODUCT USED FOR UNKNOWN INDICATION
     Dosage: UNK
     Route: 065
     Dates: start: 2006, end: 20170918
  2. XARELTO [Concomitant]
     Active Substance: RIVAROXABAN
  3. PROLIA [Suspect]
     Active Substance: DENOSUMAB
     Indication: OSTEOPOROSIS
     Dosage: UNK UNK, Q6MO
     Route: 065
     Dates: start: 2016
  4. BABY ASPIRIN [Concomitant]
     Active Substance: ASPIRIN
     Dosage: UNK
     Dates: start: 2006, end: 20170918
  5. ARIMIDEX [Concomitant]
     Active Substance: ANASTROZOLE
     Indication: BREAST CANCER STAGE IV

REACTIONS (8)
  - Scratch [Unknown]
  - Oral contusion [Unknown]
  - Neuropathy peripheral [Unknown]
  - Contusion [Unknown]
  - Oesophageal disorder [Unknown]
  - Haemorrhagic diathesis [Unknown]
  - Limb injury [Unknown]
  - Laceration [Unknown]

NARRATIVE: CASE EVENT DATE: 20170904
